FAERS Safety Report 17099943 (Version 4)
Quarter: 2020Q2

REPORT INFORMATION
  Report Type: Spontaneous
  Country: CA (occurrence: CA)
  Receive Date: 20191202
  Receipt Date: 20200406
  Transmission Date: 20200713
  Serious: Yes (Hospitalization, Other)
  Sender: FDA-Public Use
  Company Number: CA-COVIS PHARMA B.V.-2019COV00284

PATIENT
  Age: 96 Year
  Sex: Female

DRUGS (23)
  1. METFORMIN [Suspect]
     Active Substance: METFORMIN HYDROCHLORIDE
     Dosage: UNK
  2. MOGADON [Suspect]
     Active Substance: NITRAZEPAM
     Dosage: UNK
     Route: 048
  3. NITROGLYCERIN. [Suspect]
     Active Substance: NITROGLYCERIN
     Dosage: UNK
  4. QVAR [Suspect]
     Active Substance: BECLOMETHASONE DIPROPIONATE
     Dosage: 2 DOSAGE UNITS, 2X/DAY
     Route: 055
  5. SYNTHROID [Suspect]
     Active Substance: LEVOTHYROXINE SODIUM
     Dosage: UNK
     Route: 042
  6. ATOCK [Suspect]
     Active Substance: FORMOTEROL FUMARATE
     Dosage: UNK, Q12H
     Route: 055
  7. PILOCARPINE HYDROCHLORIDE. [Suspect]
     Active Substance: PILOCARPINE HYDROCHLORIDE
     Dosage: 40 MG, 1X/DAY
  8. NUCALA [Suspect]
     Active Substance: MEPOLIZUMAB
     Indication: ASTHMA
     Dosage: 100 MG, 1X/DAY
     Route: 042
  9. ATOCK [Suspect]
     Active Substance: FORMOTEROL FUMARATE
     Dosage: UNK, 1X/DAY
     Route: 055
  10. BETAXOLOL HYDROCHLORIDE. [Suspect]
     Active Substance: BETAXOLOL HYDROCHLORIDE
     Dosage: UNK
  11. AIROMIR [Suspect]
     Active Substance: ALBUTEROL SULFATE
     Dosage: UNK
     Dates: start: 1987
  12. GLUMETZA [Suspect]
     Active Substance: METFORMIN HYDROCHLORIDE
  13. ZOCOR [Concomitant]
     Active Substance: SIMVASTATIN
     Dosage: 20 MG
  14. XALATAN [Suspect]
     Active Substance: LATANOPROST
     Dosage: UNK
     Route: 047
  15. GLYCERYL TRINITRATE [Suspect]
     Active Substance: NITROGLYCERIN
     Dosage: UNK
  16. MINITRAN [Suspect]
     Active Substance: NITROGLYCERIN
     Route: 062
  17. GLYCONIAZIDE [Suspect]
     Active Substance: GLYCONIAZIDE
  18. ATOCK [Suspect]
     Active Substance: FORMOTEROL FUMARATE
     Dosage: 1 DOSAGE UNITS, 2X/DAY
     Route: 055
  19. TECTA [Suspect]
     Active Substance: PANTOPRAZOLE MAGNESIUM
     Dosage: 40 MG, 1X/DAY
  20. OMNARIS [Suspect]
     Active Substance: CICLESONIDE
     Dosage: 1 DOSAGE UNITS
     Route: 045
  21. TUDORZA [Suspect]
     Active Substance: ACLIDINIUM BROMIDE
     Route: 055
  22. GLYCOPYRRONIUM BROMIDE [Suspect]
     Active Substance: GLYCOPYRRONIUM
     Dosage: UNK
     Route: 042
  23. LEVOTHYROXINE. [Concomitant]
     Active Substance: LEVOTHYROXINE
     Dosage: 0.125 MG, DAILY

REACTIONS (31)
  - Asthma [Recovering/Resolving]
  - Productive cough [Recovering/Resolving]
  - Sputum discoloured [Recovering/Resolving]
  - Therapeutic product effect incomplete [Recovering/Resolving]
  - Adverse drug reaction [Recovering/Resolving]
  - Dizziness [Recovering/Resolving]
  - Limb injury [Recovering/Resolving]
  - Myocardial infarction [Unknown]
  - Choking [Recovering/Resolving]
  - Oedema peripheral [Recovering/Resolving]
  - Pulmonary oedema [Recovering/Resolving]
  - Urinary retention [Recovering/Resolving]
  - Haemorrhage [Recovering/Resolving]
  - Peripheral vascular disorder [Recovering/Resolving]
  - Pulmonary embolism [Recovering/Resolving]
  - Chest discomfort [Recovering/Resolving]
  - Crepitations [Recovering/Resolving]
  - Pulmonary congestion [Recovering/Resolving]
  - Angioplasty [Recovering/Resolving]
  - Weight increased [Recovering/Resolving]
  - Tachycardia [Recovering/Resolving]
  - Wound [Recovering/Resolving]
  - Acute myocardial infarction [Recovering/Resolving]
  - Coronary artery disease [Recovering/Resolving]
  - Fall [Recovering/Resolving]
  - Dyspnoea [Recovering/Resolving]
  - Cough [Recovering/Resolving]
  - Cardiac failure congestive [Recovering/Resolving]
  - Transient ischaemic attack [Recovering/Resolving]
  - Wheezing [Recovering/Resolving]
  - Glaucoma [Recovering/Resolving]

NARRATIVE: CASE EVENT DATE: 201711
